FAERS Safety Report 7097046-4 (Version None)
Quarter: 2010Q4

REPORT INFORMATION
  Report Type: 
  Country: None (occurrence: None)
  Receive Date: 20101111
  Receipt Date: 20101103
  Transmission Date: 20110411
  Serious: Yes (Disabling)
  Sender: FDA-Public Use
  Company Number: CA-BAYER-201025336NA

PATIENT
  Age: 51 Year
  Sex: Male
  Weight: 73 kg

DRUGS (5)
  1. AVELOX [Suspect]
     Indication: CHRONIC SINUSITIS
     Dosage: TOTAL DAILY DOSE: 400 MG  UNIT DOSE: 400 MG
     Route: 048
     Dates: end: 20090101
  2. CELEBREX [Concomitant]
     Route: 048
     Dates: end: 20091101
  3. MUSCLE RELAXANT [Concomitant]
     Dosage: INTERMITTENT
     Dates: start: 20020101
  4. DILAUDID [Concomitant]
     Dosage: TOTAL DAILY DOSE: 12 MG  UNIT DOSE: 4 MG
     Route: 048
     Dates: start: 20030101
  5. ACETAMINOPHEN [Concomitant]
     Indication: PAIN

REACTIONS (6)
  - ABDOMINAL PAIN [None]
  - DYSPEPSIA [None]
  - EATING DISORDER [None]
  - FEELING COLD [None]
  - HEADACHE [None]
  - WEIGHT DECREASED [None]
